FAERS Safety Report 9267237 (Version 1)
Quarter: 2013Q2

REPORT INFORMATION
  Report Type: Spontaneous
  Country: US (occurrence: US)
  Receive Date: 20130502
  Receipt Date: 20130502
  Transmission Date: 20140414
  Serious: Yes (Other)
  Sender: FDA-Public Use
  Company Number: PHEH2013US009436

PATIENT
  Sex: Female

DRUGS (1)
  1. DIOVAN HCT [Suspect]
     Dosage: 1 DF, (VALS 160 MG, HCTZ 25 MG)

REACTIONS (3)
  - Parkinson^s disease [Unknown]
  - Malaise [Unknown]
  - Chest pain [Unknown]
